FAERS Safety Report 4263087-5 (Version None)
Quarter: 2004Q1

REPORT INFORMATION
  Report Type: 
  Country: None (occurrence: None)
  Receive Date: 20040105
  Receipt Date: 20030820
  Transmission Date: 20041129
  Serious: Yes (Hospitalization)
  Sender: FDA-Public Use
  Company Number: PHBS2003JP08866

PATIENT
  Age: 67 Year
  Sex: Female
  Weight: 49 kg

DRUGS (2)
  1. MEVALOTIN [Concomitant]
     Indication: HYPERLIPIDAEMIA
  2. LAMISIL [Suspect]
     Dosage: 375 MG/D
     Route: 048
     Dates: start: 20020920, end: 20020924

REACTIONS (5)
  - ABNORMAL SENSATION IN EYE [None]
  - ACCIDENTAL EXPOSURE [None]
  - ECZEMA [None]
  - ENCEPHALITIS [None]
  - EYELID OEDEMA [None]
